FAERS Safety Report 19074083 (Version 6)
Quarter: 2021Q3

REPORT INFORMATION
  Report Type: Report from Study
  Country: US (occurrence: US)
  Receive Date: 20210330
  Receipt Date: 20210716
  Transmission Date: 20211014
  Serious: Yes (Other)
  Sender: FDA-Public Use
  Company Number: US-PFIZER INC-2021338364

PATIENT
  Age: 64 Year
  Sex: Female
  Weight: 71.6 kg

DRUGS (11)
  1. DRONABINOL. [Concomitant]
     Active Substance: DRONABINOL
     Indication: BONE PAIN
     Dosage: UNK
     Dates: start: 20190301
  2. TOZINAMERAN. [Concomitant]
     Active Substance: TOZINAMERAN
     Indication: COVID-19 IMMUNISATION
     Dosage: UNK
     Dates: start: 20210222, end: 20210222
  3. MIRACLE MOUTHWASH [Concomitant]
     Indication: MUCOSAL INFLAMMATION
     Dosage: UNK
     Dates: start: 20200514
  4. ALEVE [Concomitant]
     Active Substance: NAPROXEN SODIUM
     Indication: PAIN
     Dosage: UNK
     Dates: start: 20200301
  5. TRAMADOL. [Concomitant]
     Active Substance: TRAMADOL
     Indication: BACK PAIN
     Dosage: UNK
     Dates: start: 20210304
  6. PALBOCICLIB [Suspect]
     Active Substance: PALBOCICLIB
     Dosage: 125 MG, 1X/DAY
     Route: 048
  7. TRAMADOL. [Concomitant]
     Active Substance: TRAMADOL
     Indication: PAIN
     Dosage: UNK
     Dates: start: 20210107, end: 20210304
  8. PALBOCICLIB [Suspect]
     Active Substance: PALBOCICLIB
     Indication: BREAST CANCER
     Dosage: 125 MG, 1X/DAY
     Route: 048
     Dates: start: 20200429
  9. KP?868. [Suspect]
     Active Substance: KP-868
     Indication: BREAST CANCER
     Dosage: 150 MG, 1X/DAY
     Route: 048
     Dates: start: 20200429
  10. KP?868. [Suspect]
     Active Substance: KP-868
     Dosage: 150 MG, 1X/DAY
     Route: 048
     Dates: start: 20210314
  11. DENOSUMAB [Concomitant]
     Active Substance: DENOSUMAB
     Indication: METASTASES TO BONE
     Dosage: UNK
     Dates: start: 20170221

REACTIONS (1)
  - Embolism [Recovered/Resolved]

NARRATIVE: CASE EVENT DATE: 20210315
